FAERS Safety Report 17681215 (Version 3)
Quarter: 2020Q2

REPORT INFORMATION
  Report Type: Spontaneous
  Country: RU (occurrence: RU)
  Receive Date: 20200417
  Receipt Date: 20200527
  Transmission Date: 20200714
  Serious: Yes (Hospitalization, Other)
  Sender: FDA-Public Use
  Company Number: NVSC2020RU103049

PATIENT
  Sex: Female

DRUGS (1)
  1. AMOKSIKLAV [Suspect]
     Active Substance: AMOXICILLIN\CLAVULANATE POTASSIUM
     Indication: FOETAL EXPOSURE DURING PREGNANCY
     Dosage: MATERNAL DOSE: UNKNOWN
     Route: 064

REACTIONS (11)
  - Acidosis [Unknown]
  - Neonatal respiratory failure [Unknown]
  - Sinus bradycardia [Unknown]
  - Respiratory arrest [Unknown]
  - Hypoxic-ischaemic encephalopathy [Unknown]
  - Haemorrhagic disease of newborn [Unknown]
  - Bradycardia [Unknown]
  - Foetal distress syndrome [Unknown]
  - Infantile apnoea [Unknown]
  - Hypoventilation neonatal [Unknown]
  - Foetal exposure during pregnancy [Unknown]
